FAERS Safety Report 7206587-8 (Version None)
Quarter: 2011Q1

REPORT INFORMATION
  Report Type: 
  Country: None (occurrence: None)
  Receive Date: 20110103
  Receipt Date: 20101223
  Transmission Date: 20110831
  Serious: Yes (Hospitalization)
  Sender: FDA-Public Use
  Company Number: US-ACTELION-A-US2010-40613

PATIENT

DRUGS (3)
  1. BOSENTAN TABLET UNKNOWN US MG [Suspect]
     Indication: PULMONARY ARTERIAL HYPERTENSION
     Dosage: UNK
     Route: 048
     Dates: start: 20101006
  2. IMURAN [Concomitant]
  3. RITUXAN [Concomitant]

REACTIONS (14)
  - CHILLS [None]
  - NAUSEA [None]
  - PYREXIA [None]
  - WOUND [None]
  - PAIN [None]
  - ARTHRALGIA [None]
  - HEPATIC ENZYME INCREASED [None]
  - ASTHENIA [None]
  - ABDOMINAL PAIN UPPER [None]
  - CELLULITIS [None]
  - DYSPNOEA [None]
  - RASH [None]
  - VOMITING [None]
  - FATIGUE [None]
